FAERS Safety Report 9992128 (Version 1)
Quarter: 2014Q1

REPORT INFORMATION
  Report Type: Spontaneous
  Country: US (occurrence: US)
  Receive Date: 20140310
  Receipt Date: 20140310
  Transmission Date: 20141002
  Serious: Yes (Hospitalization)
  Sender: FDA-Public Use
  Company Number: US-B.I. PHARMACEUTICALS,INC./RIDGEFIELD-2014-BI-09491BP

PATIENT
  Age: 62 Year
  Sex: Female
  Weight: 120 kg

DRUGS (11)
  1. SPIRIVA [Suspect]
     Indication: CARDIAC FAILURE CONGESTIVE
     Dosage: 18 MCG
     Route: 055
     Dates: start: 201301
  2. SIMVASTATIN [Concomitant]
     Indication: BLOOD CHOLESTEROL INCREASED
     Dosage: 40 MG
     Route: 048
  3. FUROSEMIDE [Concomitant]
     Indication: CARDIAC FAILURE CONGESTIVE
     Dosage: 80 MG
     Route: 048
  4. FLUOXETINE [Concomitant]
     Indication: DEPRESSION
     Dosage: 20 MG
     Route: 048
     Dates: start: 2010
  5. METOPROLOL [Concomitant]
     Indication: HEART RATE
     Dosage: 50 MG
     Route: 048
  6. FESO4 [Concomitant]
     Indication: BLOOD IRON DECREASED
     Dosage: 325 MG
     Route: 048
  7. CALCITROL [Concomitant]
     Indication: BLOOD CALCIUM DECREASED
     Dosage: 0.25 MCG
     Route: 048
  8. OMEPRAZOLE [Concomitant]
     Indication: GASTROOESOPHAGEAL REFLUX DISEASE
     Dosage: 80 MG
     Route: 048
  9. FOLIC ACID [Concomitant]
     Dosage: 1 MG
     Route: 048
  10. METOLAZONE [Concomitant]
     Indication: CARDIAC FAILURE CONGESTIVE
     Dosage: 5 MG
     Route: 048
  11. ALPRAZOLAM [Concomitant]
     Indication: STRESS
     Dosage: 1 MG
     Route: 048

REACTIONS (4)
  - Cardiac failure congestive [Recovered/Resolved]
  - Blood potassium decreased [Unknown]
  - Blood magnesium decreased [Unknown]
  - Off label use [Unknown]
